FAERS Safety Report 8152969-X (Version None)
Quarter: 2012Q1

REPORT INFORMATION
  Report Type: 
  Country: None (occurrence: None)
  Receive Date: 20120221
  Receipt Date: 20120214
  Transmission Date: 20120608
  Serious: Yes (Hospitalization)
  Sender: FDA-Public Use
  Company Number: IL-SANOFI-AVENTIS-2012SA009695

PATIENT

DRUGS (2)
  1. CEPHALOSPORINS AND RELATED SUBSTANCES [Concomitant]
     Indication: INFECTION PROPHYLAXIS
     Dosage: 30 MINUTES BEFORE SURGERY
     Route: 042
  2. CLOPIDOGREL BISULFATE [Suspect]
     Indication: ANTIPLATELET THERAPY
     Route: 048

REACTIONS (1)
  - WOUND INFECTION [None]
